FAERS Safety Report 19714174 (Version 1)
Quarter: 2021Q3

REPORT INFORMATION
  Report Type: Spontaneous
  Country: US (occurrence: US)
  Receive Date: 20210818
  Receipt Date: 20210818
  Transmission Date: 20211014
  Serious: Yes (Other)
  Sender: FDA-Public Use
  Company Number: None

PATIENT
  Age: 73 Year
  Sex: Female

DRUGS (8)
  1. MONTELUKAST [Concomitant]
     Active Substance: MONTELUKAST SODIUM
  2. TRULICITY 0.75/0.5 [Concomitant]
     Dates: start: 20190903, end: 20210616
  3. OMEPRAZOLE 40MG [Concomitant]
     Active Substance: OMEPRAZOLE
  4. METFORMIN ER 750 [Concomitant]
     Active Substance: METFORMIN HYDROCHLORIDE
  5. ALBUTEROL SULFATE HFA [Concomitant]
     Active Substance: ALBUTEROL SULFATE
  6. SYNTHROID 0.025 [Concomitant]
     Dates: start: 20191015
  7. NITROFURANTOIN MONOHYDRATE 100 MG [Concomitant]
     Dates: start: 20191115
  8. METHENAMINE HIPPURATE. [Suspect]
     Active Substance: METHENAMINE HIPPURATE
     Indication: PRODUCT USED FOR UNKNOWN INDICATION
     Route: 048
     Dates: start: 20170517, end: 20200507

REACTIONS (3)
  - Crystalluria [None]
  - Pain [None]
  - Tissue injury [None]

NARRATIVE: CASE EVENT DATE: 20191115
